FAERS Safety Report 8885052 (Version 2)
Quarter: 2012Q4

REPORT INFORMATION
  Report Type: Report from Study
  Country: US (occurrence: US)
  Receive Date: 20121102
  Receipt Date: 20121217
  Transmission Date: 20130627
  Serious: Yes (Hospitalization)
  Sender: FDA-Public Use
  Company Number: US-ACTELION-A-US2012-73346

PATIENT
  Age: 62 Year
  Sex: Female

DRUGS (4)
  1. VELETRI [Suspect]
     Indication: PULMONARY ARTERIAL HYPERTENSION
     Dosage: 10.4 ng/kg, UNK
     Route: 042
     Dates: start: 20110820
  2. VELETRI [Suspect]
     Dosage: 11 ng/kg, UNK
     Route: 042
  3. LETAIRIS [Concomitant]
  4. COUMADIN [Concomitant]

REACTIONS (1)
  - Electrolyte imbalance [Recovered/Resolved]
